FAERS Safety Report 4661246-0 (Version None)
Quarter: 2005Q2

REPORT INFORMATION
  Report Type: 
  Country: None (occurrence: None)
  Receive Date: 20050513
  Receipt Date: 20050222
  Transmission Date: 20051028
  Serious: Yes (Hospitalization)
  Sender: FDA-Public Use
  Company Number: US-SOLVAY-00205000589

PATIENT
  Age: 681 Month
  Sex: Female
  Weight: 71 kg

DRUGS (1)
  1. ESTRATEST H.S. [Suspect]
     Indication: MENOPAUSAL SYMPTOMS
     Dosage: DAILY DOSE: 1 DOSAGE FORM
     Route: 048
     Dates: start: 19980720, end: 20050221

REACTIONS (3)
  - ATRIAL FIBRILLATION [None]
  - HYPERLIPIDAEMIA [None]
  - TACHYCARDIA [None]
